FAERS Safety Report 8146336-2 (Version None)
Quarter: 2012Q1

REPORT INFORMATION
  Report Type: 
  Country: None (occurrence: None)
  Receive Date: 20120217
  Receipt Date: 20120207
  Transmission Date: 20120608
  Serious: Yes (Hospitalization, Other)
  Sender: FDA-Public Use
  Company Number: BR-ROCHE-1015717

PATIENT
  Sex: Female

DRUGS (5)
  1. ALBUTEROL SULFATE AUTOHALER [Concomitant]
  2. BEROTEC [Concomitant]
  3. ATROVENT [Concomitant]
  4. OMALIZUMAB [Suspect]
     Indication: ASTHMA
     Dates: start: 20110715
  5. CAPTOPRIL [Concomitant]

REACTIONS (6)
  - SYNCOPE [None]
  - ABDOMINAL PAIN [None]
  - URINE OUTPUT DECREASED [None]
  - GASTROENTERITIS [None]
  - BLOOD PRESSURE INCREASED [None]
  - NEPHROLITHIASIS [None]
